FAERS Safety Report 7712550-0 (Version None)
Quarter: 2011Q3

REPORT INFORMATION
  Report Type: 
  Country: None (occurrence: None)
  Receive Date: 20110823
  Receipt Date: 20110807
  Transmission Date: 20111222
  Serious: Yes (Other)
  Sender: FDA-Public Use
  Company Number: GB-DEXPHARM-20111166

PATIENT
  Age: 75 Year
  Sex: Male

DRUGS (1)
  1. OMEPRAZOLE [Suspect]

REACTIONS (2)
  - HALLUCINATION, VISUAL [None]
  - AGITATION [None]
